FAERS Safety Report 17558304 (Version 2)
Quarter: 2020Q3

REPORT INFORMATION
  Report Type: Spontaneous
  Country: DE (occurrence: DE)
  Receive Date: 20200319
  Receipt Date: 20200709
  Transmission Date: 20201102
  Serious: Yes (Hospitalization, Other)
  Sender: FDA-Public Use
  Company Number: DE-DRREDDYS-USA/GER/20/0120829

PATIENT
  Age: 25 Year
  Sex: Male

DRUGS (1)
  1. VENLAFAXINE HYDROCHLORIDE. [Suspect]
     Active Substance: VENLAFAXINE HYDROCHLORIDE
     Indication: MAJOR DEPRESSION
     Route: 065

REACTIONS (8)
  - Restlessness [Recovered/Resolved]
  - Headache [Recovered/Resolved]
  - Hyperhidrosis [Recovered/Resolved]
  - Obsessive-compulsive symptom [Recovered/Resolved]
  - Withdrawal syndrome [Recovered/Resolved]
  - Condition aggravated [Recovered/Resolved]
  - Nausea [Recovered/Resolved]
  - Dizziness [Recovered/Resolved]
